FAERS Safety Report 15289834 (Version 1)
Quarter: 2018Q3

REPORT INFORMATION
  Report Type: Report from Study
  Country: None (occurrence: US)
  Receive Date: 20180817
  Receipt Date: 20180817
  Transmission Date: 20181010
  Serious: Yes (Hospitalization, Other)
  Sender: FDA-Public Use
  Company Number: US-ABBVIE-18K-163-2404407-00

PATIENT
  Age: 79 Year
  Sex: Male
  Weight: 68.1 kg

DRUGS (3)
  1. FLOMAX [Concomitant]
     Active Substance: TAMSULOSIN HYDROCHLORIDE
     Indication: PROSTATOMEGALY
  2. HUMIRA [Suspect]
     Active Substance: ADALIMUMAB
     Indication: CROHN^S DISEASE
     Route: 058
     Dates: start: 2015
  3. OMEPRAZOLE. [Concomitant]
     Active Substance: OMEPRAZOLE
     Indication: GASTROOESOPHAGEAL REFLUX DISEASE

REACTIONS (7)
  - Intervertebral disc degeneration [Recovering/Resolving]
  - Fall [Not Recovered/Not Resolved]
  - Gait disturbance [Not Recovered/Not Resolved]
  - Weight decreased [Not Recovered/Not Resolved]
  - Laceration [Recovered/Resolved]
  - Venous occlusion [Not Recovered/Not Resolved]
  - Sciatica [Not Recovered/Not Resolved]

NARRATIVE: CASE EVENT DATE: 2015
